FAERS Safety Report 4707257-8 (Version None)
Quarter: 2005Q3

REPORT INFORMATION
  Report Type: 
  Country: None (occurrence: None)
  Receive Date: 20050701
  Receipt Date: 20050701
  Transmission Date: 20060218
  Serious: Yes (Life-Threatening, Hospitalization)
  Sender: FDA-Public Use
  Company Number: None

PATIENT
  Age: 46 Year
  Sex: Female
  Weight: 76.2043 kg

DRUGS (4)
  1. MIRCETTE [Suspect]
     Indication: CONTRACEPTION
     Dosage: 1XDAILY
  2. MIRCETTE [Suspect]
     Indication: MOOD SWINGS
     Dosage: 1XDAILY
  3. MIRCETTE [Suspect]
     Indication: OVARIAN CANCER
     Dosage: 1XDAILY
  4. MIRCETTE [Suspect]
     Indication: PROPHYLAXIS
     Dosage: 1XDAILY

REACTIONS (4)
  - DEEP VEIN THROMBOSIS [None]
  - DYSPNOEA [None]
  - PLEURISY [None]
  - PULMONARY EMBOLISM [None]
